FAERS Safety Report 15309757 (Version 4)
Quarter: 2020Q1

REPORT INFORMATION
  Report Type: Spontaneous
  Country: DE (occurrence: DE)
  Receive Date: 20180823
  Receipt Date: 20200305
  Transmission Date: 20200409
  Serious: Yes (Hospitalization, Other)
  Sender: FDA-Public Use
  Company Number: DE-DRREDDYS-GER/GER/18/0103376

PATIENT
  Age: 39 Year
  Sex: Female
  Weight: 54 kg

DRUGS (7)
  1. DOCETAXEL. [Suspect]
     Active Substance: DOCETAXEL
     Indication: HER-2 POSITIVE BREAST CANCER
     Dosage: DATE OF LAST DOSE PRIOR TO SAE: 09/SEP/2016 DATE OF LAST DOSE PRIOR TO SAE ON 20/OCT/2016.
     Route: 042
     Dates: start: 20160527, end: 20160909
  2. NOVALGIN (METAMIZOLE SODIUM) [Concomitant]
     Active Substance: METAMIZOLE SODIUM
     Indication: PAIN
     Route: 048
  3. HERCEPTIN [Suspect]
     Active Substance: TRASTUZUMAB
     Indication: HER-2 POSITIVE BREAST CANCER
     Dosage: DATE OF LAST DOSE PRIOR TO SAE: 09/SEP/2016?DATE OF LAST DOSE PRIOR TO EVENT SECOND OCCURENCE OF ANE
     Route: 042
     Dates: start: 20160527
  4. LONQUEX [Suspect]
     Active Substance: LIPEGFILGRASTIM
     Indication: BREAST CANCER
     Dosage: D2 DATE OF LAST DOSE PRIOR TO SAE ON 20/OCT/2016.
     Route: 058
     Dates: start: 20160617
  5. PERTUZUMAB. [Suspect]
     Active Substance: PERTUZUMAB
     Dosage: DATE OF LAST DOSE PRIOR TO SAE: 09/SEP/2016?DATE OF LAST DOSE PRIOR TO EVENT SECOND OCCURENCE OF ANE
     Route: 042
     Dates: start: 20161214
  6. PERTUZUMAB. [Suspect]
     Active Substance: PERTUZUMAB
     Indication: HER-2 POSITIVE BREAST CANCER
     Dosage: DATE OF LAST DOSE PRIOR TO SAE: 09/SEP/2016?DATE OF LAST DOSE PRIOR TO EVENT SECOND OCCURENCE OF ANE
     Route: 042
     Dates: start: 20160527
  7. IBUPROFEN. [Concomitant]
     Active Substance: IBUPROFEN
     Indication: PAIN
     Dosage: DAILY DOSE: 600 MG MILLGRAM(S) EVERY DAYS
     Route: 048
     Dates: start: 20160630

REACTIONS (20)
  - Hypokinesia [Recovered/Resolved]
  - Alopecia [Recovered/Resolved]
  - Diarrhoea [Recovered/Resolved]
  - Fatigue [Recovered/Resolved with Sequelae]
  - Polyneuropathy [Recovered/Resolved]
  - Pain [Unknown]
  - Swelling [Unknown]
  - Vascular device infection [Unknown]
  - Epistaxis [Recovered/Resolved]
  - Haematoma [Recovered/Resolved]
  - Dizziness [Recovered/Resolved with Sequelae]
  - Abdominal pain [Recovered/Resolved]
  - Anaemia [Recovered/Resolved]
  - Hot flush [Recovered/Resolved]
  - Decreased appetite [Recovered/Resolved]
  - Dyspnoea [Recovered/Resolved with Sequelae]
  - Anal fissure [Recovered/Resolved]
  - Post-traumatic pain [Not Recovered/Not Resolved]
  - Neutropenia [Recovered/Resolved]
  - Vaginal infection [Recovered/Resolved with Sequelae]

NARRATIVE: CASE EVENT DATE: 20160527
